FAERS Safety Report 9734557 (Version 1)
Quarter: 2013Q4

REPORT INFORMATION
  Report Type: Spontaneous
  Country: ZA (occurrence: ZA)
  Receive Date: 20131206
  Receipt Date: 20131206
  Transmission Date: 20140711
  Serious: Yes (Other)
  Sender: FDA-Public Use
  Company Number: ZA-BRISTOL-MYERS SQUIBB COMPANY-19873504

PATIENT
  Sex: Male

DRUGS (1)
  1. HYDREA [Suspect]
     Dates: start: 2009

REACTIONS (1)
  - Infertility [Unknown]
